FAERS Safety Report 4266066-7 (Version None)
Quarter: 2004Q1

REPORT INFORMATION
  Report Type: 
  Country: None (occurrence: None)
  Receive Date: 20040106
  Receipt Date: 20031222
  Transmission Date: 20041129
  Serious: Yes (Hospitalization)
  Sender: FDA-Public Use
  Company Number: JP-JNJFOC-20031201043

PATIENT
  Age: 84 Year
  Sex: Female
  Weight: 30 kg

DRUGS (2)
  1. LEVOFLOXACIN [Suspect]
     Indication: URINARY TRACT INFECTION
     Dosage: 300 MG, 3 IN 1 DAY, ORAL
     Route: 048
     Dates: start: 20031002, end: 20031003
  2. CHOREITOU (CHOREITOU) [Suspect]
     Indication: URINARY TRACT INFECTION
     Dosage: 7.5 MG, 1 IN 1 DAY, ORAL
     Route: 048
     Dates: start: 20031002, end: 20031003

REACTIONS (8)
  - ABASIA [None]
  - ASTHENIA [None]
  - DEPRESSED LEVEL OF CONSCIOUSNESS [None]
  - HEMIPARESIS [None]
  - LIVER DISORDER [None]
  - MUSCULAR WEAKNESS [None]
  - SELECTIVE MUTISM [None]
  - URINARY INCONTINENCE [None]
